FAERS Safety Report 7792887-X (Version None)
Quarter: 2011Q4

REPORT INFORMATION
  Report Type: 
  Country: None (occurrence: None)
  Receive Date: 20111003
  Receipt Date: 20110927
  Transmission Date: 20120403
  Serious: Yes (Other)
  Sender: FDA-Public Use
  Company Number: AU-BRISTOL-MYERS SQUIBB COMPANY-16115925

PATIENT
  Sex: Male

DRUGS (1)
  1. ORENCIA [Suspect]
     Dosage: NO OF INF:4
     Dates: start: 20110601

REACTIONS (3)
  - CARDIAC FAILURE ACUTE [None]
  - MUSCULOSKELETAL STIFFNESS [None]
  - HERPES ZOSTER [None]
